FAERS Safety Report 21860121 (Version 3)
Quarter: 2023Q1

REPORT INFORMATION
  Report Type: Report from Study
  Country: US (occurrence: US)
  Receive Date: 20230113
  Receipt Date: 20230221
  Transmission Date: 20230418
  Serious: No
  Sender: FDA-Public Use
  Company Number: US-BRISTOL-MYERS SQUIBB COMPANY-2023-006119

PATIENT
  Age: 73 Year
  Sex: Male

DRUGS (1)
  1. SOTYKTU [Suspect]
     Active Substance: DEUCRAVACITINIB
     Indication: Product used for unknown indication
     Dosage: DOSE: 1 TABLET?WITH FOOD
     Route: 048

REACTIONS (2)
  - Cough [Unknown]
  - Ear pain [Unknown]

NARRATIVE: CASE EVENT DATE: 20221221
